FAERS Safety Report 15339557 (Version 2)
Quarter: 2018Q3

REPORT INFORMATION
  Report Type: Spontaneous
  Country: FR (occurrence: FR)
  Receive Date: 20180831
  Receipt Date: 20180919
  Transmission Date: 20181010
  Serious: Yes (Other)
  Sender: FDA-Public Use
  Company Number: FR-009507513-1808FRA011303

PATIENT
  Sex: Female

DRUGS (2)
  1. AERIUS [Suspect]
     Active Substance: DESLORATADINE
     Indication: URTICARIA
     Dosage: UNK
  2. AERIUS [Suspect]
     Active Substance: DESLORATADINE
     Indication: MITE ALLERGY
     Dosage: 1 DF, QD EVERY EVENING
     Route: 048
     Dates: start: 1998

REACTIONS (2)
  - Allergy to arthropod bite [Unknown]
  - Open angle glaucoma [Unknown]
